FAERS Safety Report 8378429-9 (Version None)
Quarter: 2012Q2

REPORT INFORMATION
  Report Type: 
  Country: None (occurrence: None)
  Receive Date: 20120522
  Receipt Date: 20110607
  Transmission Date: 20120825
  Serious: No
  Sender: FDA-Public Use
  Company Number: US-ASTRAZENECA-2011SE35376

PATIENT
  Sex: Female

DRUGS (4)
  1. PEPCID [Concomitant]
  2. PRILOSEC [Suspect]
     Route: 048
  3. VERAPAMIL [Concomitant]
  4. NEXIUM [Concomitant]

REACTIONS (2)
  - DRUG HYPERSENSITIVITY [None]
  - DOCUMENTED HYPERSENSITIVITY TO ADMINISTERED DRUG [None]
